FAERS Safety Report 18398785 (Version 1)
Quarter: 2020Q4

REPORT INFORMATION
  Report Type: Spontaneous
  Country: US (occurrence: US)
  Receive Date: 20201019
  Receipt Date: 20201019
  Transmission Date: 20210114
  Serious: No
  Sender: FDA-Public Use
  Company Number: US-009507513-2010USA005608

PATIENT
  Age: 58 Year
  Sex: Female

DRUGS (1)
  1. SINGULAIR [Suspect]
     Active Substance: MONTELUKAST SODIUM
     Indication: RASH
     Dosage: 10 MILLIGRAM, DAILY (QD)

REACTIONS (1)
  - Product use in unapproved indication [Unknown]
